FAERS Safety Report 5078680-X (Version None)
Quarter: 2006Q3

REPORT INFORMATION
  Report Type: 
  Country: None (occurrence: None)
  Receive Date: 20060809
  Receipt Date: 20060809
  Transmission Date: 20061208
  Serious: Yes (Life-Threatening)
  Sender: FDA-Public Use
  Company Number: None

PATIENT
  Age: 47 Year
  Sex: Female
  Weight: 72.5755 kg

DRUGS (2)
  1. LEVAQUIN [Suspect]
     Indication: BRONCHITIS
     Dosage: 1 TABLET 1 TIME A DAY PO
     Route: 048
     Dates: start: 20060609, end: 20060619
  2. LEVAQUIN [Suspect]
     Indication: BRONCHITIS
     Dosage: 1 TABLET 1 TIME A DAY PO
     Route: 048
     Dates: start: 20060623, end: 20060704

REACTIONS (14)
  - ARTHRALGIA [None]
  - COUGH [None]
  - DIZZINESS [None]
  - EAR PAIN [None]
  - FACIAL PAIN [None]
  - GAIT DISTURBANCE [None]
  - HEADACHE [None]
  - INSOMNIA [None]
  - JOINT EFFUSION [None]
  - JOINT SWELLING [None]
  - OEDEMA PERIPHERAL [None]
  - PAIN IN EXTREMITY [None]
  - SINUSITIS [None]
  - WHEEZING [None]
